FAERS Safety Report 9095933 (Version 2)
Quarter: 2013Q1

REPORT INFORMATION
  Report Type: Spontaneous
  Country: CA (occurrence: CA)
  Receive Date: 20130220
  Receipt Date: 20130305
  Transmission Date: 20140127
  Serious: Yes (Hospitalization, Other)
  Sender: FDA-Public Use
  Company Number: CA-AMGEN-CANSP2013009740

PATIENT
  Age: 43 Year
  Sex: Female

DRUGS (1)
  1. XGEVA [Suspect]
     Indication: METASTASES TO BONE
     Dosage: UNK UNK, Q4WK
     Route: 058
     Dates: start: 20130125

REACTIONS (5)
  - Metastases to small intestine [Not Recovered/Not Resolved]
  - Vomiting [Unknown]
  - Obstruction gastric [Unknown]
  - Bile duct obstruction [Unknown]
  - Jaundice [Not Recovered/Not Resolved]
